FAERS Safety Report 24735766 (Version 2)
Quarter: 2024Q4

REPORT INFORMATION
  Report Type: Report from Study
  Country: KR (occurrence: KR)
  Receive Date: 20241216
  Receipt Date: 20241219
  Transmission Date: 20250115
  Serious: Yes (Hospitalization)
  Sender: ABBVIE
  Company Number: KR-ABBVIE-6043690

PATIENT
  Age: 64 Year
  Sex: Female
  Weight: 62 kg

DRUGS (7)
  1. RINVOQ [Suspect]
     Active Substance: UPADACITINIB
     Indication: Rheumatoid arthritis
     Dosage: FORM STRENGTH 15 MILLIGRAM
     Route: 048
     Dates: start: 20240129
  2. CALTEO [Concomitant]
     Indication: Rheumatoid arthritis
     Route: 048
     Dates: start: 20220630
  3. Yuhan methotrexate [Concomitant]
     Indication: Rheumatoid arthritis
     Route: 048
     Dates: start: 20240129
  4. Sinil folic acid [Concomitant]
     Indication: Vitamin supplementation
     Route: 048
     Dates: start: 20220630
  5. CELECOXIB [Concomitant]
     Active Substance: CELECOXIB
     Indication: Rheumatoid arthritis
     Dosage: DONGBANG CELECOXIB
     Route: 048
     Dates: start: 20220630
  6. BEECOM [Concomitant]
     Indication: Vitamin supplementation
     Route: 048
     Dates: start: 20220630
  7. PREDNISOLONE [Concomitant]
     Active Substance: PREDNISOLONE
     Indication: Rheumatoid arthritis
     Route: 048
     Dates: start: 20220929

REACTIONS (1)
  - Tendon rupture [Recovered/Resolved with Sequelae]

NARRATIVE: CASE EVENT DATE: 20240501
